FAERS Safety Report 12453071 (Version 6)
Quarter: 2019Q3

REPORT INFORMATION
  Report Type: Report from Study
  Country: US (occurrence: US)
  Receive Date: 20160609
  Receipt Date: 20190830
  Transmission Date: 20191004
  Serious: Yes (Other)
  Sender: FDA-Public Use
  Company Number: US-EISAI MEDICAL RESEARCH-EC-2016-016550

PATIENT
  Age: 63 Year
  Sex: Female
  Weight: 59.7 kg

DRUGS (24)
  1. PEPCID [Concomitant]
     Active Substance: FAMOTIDINE
  2. PERIDEX [Concomitant]
     Active Substance: CHLORHEXIDINE GLUCONATE
  3. VITAMIN E [Concomitant]
     Active Substance: .ALPHA.-TOCOPHEROL
  4. ATIVAN [Concomitant]
     Active Substance: LORAZEPAM
  5. VITAMIN E [Concomitant]
     Active Substance: .ALPHA.-TOCOPHEROL
  6. PEMBROLIZUMAB. [Suspect]
     Active Substance: PEMBROLIZUMAB
     Indication: BREAST CANCER METASTATIC
     Route: 041
     Dates: start: 20160126
  7. GELCLAIR [Concomitant]
  8. NYSTOP [Concomitant]
     Active Substance: NYSTATIN
  9. NYSTATIN. [Concomitant]
     Active Substance: NYSTATIN
  10. VALTREX [Concomitant]
     Active Substance: VALACYCLOVIR HYDROCHLORIDE
  11. ERIBULIN [Suspect]
     Active Substance: ERIBULIN
     Route: 041
     Dates: start: 20160510, end: 20160517
  12. ERIBULIN [Suspect]
     Active Substance: ERIBULIN
     Route: 041
     Dates: start: 20160621
  13. MAGIC MOUTHWASH [Concomitant]
     Active Substance: DIPHENHYDRAMINE HYDROCHLORIDE\LIDOCAINE HYDROCHLORIDE\NYSTATIN
  14. ERIBULIN [Suspect]
     Active Substance: ERIBULIN
     Indication: BREAST CANCER METASTATIC
     Route: 041
     Dates: start: 20160126, end: 20160405
  15. PRILOSEC [Concomitant]
     Active Substance: OMEPRAZOLE MAGNESIUM
  16. SENOKOT [Concomitant]
     Active Substance: SENNOSIDES
  17. DECADRON [Concomitant]
     Active Substance: DEXAMETHASONE
  18. MAG + AL/SIM/DIPHENHYD/LIDOCAINE [Concomitant]
  19. ERIBULIN [Suspect]
     Active Substance: ERIBULIN
     Route: 041
     Dates: start: 20160419, end: 20160419
  20. OXYCODONE [Concomitant]
     Active Substance: OXYCODONE
  21. COMPAZINE [Concomitant]
     Active Substance: PROCHLORPERAZINE MALEATE
  22. DELTASONE [Concomitant]
     Active Substance: PREDNISONE
  23. TEMOVATE [Concomitant]
     Active Substance: CLOBETASOL PROPIONATE
  24. FLUCONAZOLE. [Concomitant]
     Active Substance: FLUCONAZOLE

REACTIONS (3)
  - Rash maculo-papular [Recovered/Resolved]
  - Stomatitis [Recovered/Resolved]
  - Oesophageal candidiasis [Recovered/Resolved]

NARRATIVE: CASE EVENT DATE: 20160419
